FAERS Safety Report 6806494 (Version 3)
Quarter: 2012Q4

REPORT INFORMATION
  Report Type: 
  Country: JP (occurrence: JP)
  Receive Date: 20081107
  Receipt Date: 20120919
  Transmission Date: 20130627
  Serious: Yes (Death, Life-Threatening, Hospitalization, Other)
  Sender: FDA-Public Use
  Company Number: JP-PFIZER INC-2008091423

PATIENT
  Age: 14 Year
  Sex: Male
  Weight: 74.5 kg

DRUGS (12)
  1. VFEND [Suspect]
     Indication: FUNGAL INFECTION
     Dosage: 400 mg, 1x/day
     Route: 042
     Dates: start: 20080917, end: 20080918
  2. VFEND [Suspect]
     Dosage: 200 mg, 2x/day
     Route: 042
     Dates: start: 20080918, end: 20080924
  3. AMBISOME [Suspect]
     Indication: FUNGAL INFECTION
     Dosage: 350 mg, 1x/day
     Dates: start: 20080909, end: 20080923
  4. HABEKACIN [Concomitant]
     Route: 042
     Dates: start: 20080904, end: 20080916
  5. FIRSTCIN [Concomitant]
     Route: 042
     Dates: start: 20080905, end: 20080916
  6. MODACIN [Concomitant]
     Dates: start: 20080917
  7. AMIKACIN SULFATE [Concomitant]
     Dates: start: 20080921
  8. NEUTROGIN [Concomitant]
     Dates: start: 20080825
  9. CATABON [Concomitant]
     Route: 042
     Dates: start: 20080923
  10. LASIX [Concomitant]
     Route: 042
     Dates: start: 20080906
  11. SODIUM CHLORIDE [Concomitant]
     Route: 042
     Dates: start: 20080911
  12. KCL [Concomitant]
     Route: 042
     Dates: start: 20080912

REACTIONS (5)
  - Acute lymphocytic leukaemia [Fatal]
  - Respiratory failure [Fatal]
  - Torsade de pointes [Recovered/Resolved with Sequelae]
  - Ventricular extrasystoles [Recovered/Resolved]
  - Ventricular fibrillation [Recovered/Resolved]
